FAERS Safety Report 9440593 (Version 1)
Quarter: 2013Q3

REPORT INFORMATION
  Report Type: Report from Study
  Country: US (occurrence: US)
  Receive Date: 20130805
  Receipt Date: 20130805
  Transmission Date: 20140515
  Serious: Yes (Hospitalization, Other)
  Sender: FDA-Public Use
  Company Number: US-TEVA-423097USA

PATIENT
  Age: 53 Year
  Sex: Female
  Weight: 74 kg

DRUGS (5)
  1. FOLINIC ACID [Suspect]
     Indication: ADENOCARCINOMA OF COLON
     Dosage: CYCLIC; OVER 2 HOURS ON DAY 1
     Route: 042
     Dates: start: 20121211
  2. CELECOXIB [Suspect]
     Indication: ADENOCARCINOMA OF COLON
     Dosage: 400 MILLIGRAM DAILY; ON DAY 1 OF CYCLE 2;BLINDED, INFORMATION WITHHELD;PLACEBO CODE NOT BROKEN
     Route: 048
  3. FLUOROURACIL [Suspect]
     Indication: ADENOCARCINOMA OF COLON
     Dosage: ON DAY 1
     Route: 040
     Dates: start: 20121211
  4. FLUOROURACIL [Suspect]
     Dosage: OVER 46-48 HOURS ON DAY 1
     Route: 042
  5. OXALIPLATIN [Suspect]
     Indication: ADENOCARCINOMA OF COLON
     Dosage: CYCLIC; OVER 2 HOURS ON DAY 1
     Route: 042
     Dates: start: 20121211

REACTIONS (2)
  - Anaemia [Recovered/Resolved]
  - Neutrophil count decreased [Recovered/Resolved]
